FAERS Safety Report 9197135 (Version 1)
Quarter: 2013Q1

REPORT INFORMATION
  Report Type: Spontaneous
  Country: US (occurrence: None)
  Receive Date: 20120709
  Receipt Date: 20120709
  Transmission Date: 20140127
  Serious: Yes (Other)
  Sender: FDA-Public Use
  Company Number: PHHY2011US58845

PATIENT
  Sex: Female

DRUGS (3)
  1. GLEEVEC [Suspect]
     Route: 048
  2. VITAMIN D (ERGOCALCIFEROL) [Concomitant]
  3. CALCIUM (CALCIUM) TABLET [Concomitant]

REACTIONS (1)
  - Anaemia [None]
